FAERS Safety Report 5686681-3 (Version None)
Quarter: 2008Q1

REPORT INFORMATION
  Report Type: 
  Country: None (occurrence: None)
  Receive Date: 20080328
  Receipt Date: 20070515
  Transmission Date: 20080703
  Serious: No
  Sender: FDA-Public Use
  Company Number: US-BAYER-US-2007-017583

PATIENT
  Age: 33 Year
  Sex: Female
  Weight: 100 kg

DRUGS (6)
  1. MIRENA [Suspect]
     Indication: GENITAL HAEMORRHAGE
     Route: 015
     Dates: start: 20060825, end: 20070511
  2. DIET FORMULATIONS FOR TREATMENT OF OBESITY (LIPOZENE) [Concomitant]
  3. SYNTHROID (CYNTHROID) [Concomitant]
  4. SEROQUEL [Concomitant]
  5. CLONAVE [Concomitant]
  6. PEXEVA [Concomitant]

REACTIONS (1)
  - IUCD COMPLICATION [None]
